FAERS Safety Report 7298345-3 (Version None)
Quarter: 2011Q1

REPORT INFORMATION
  Report Type: 
  Country: None (occurrence: None)
  Receive Date: 20110208
  Receipt Date: 20110126
  Transmission Date: 20110831
  Serious: Yes (Hospitalization)
  Sender: FDA-Public Use
  Company Number: 20110080

PATIENT
  Age: 59 Year
  Sex: Female

DRUGS (8)
  1. VITAMIN D [Concomitant]
  2. NEXIUM [Concomitant]
  3. ZOLPIDEM [Concomitant]
  4. ANASTRAZOLA [Concomitant]
  5. DEXAMETHASONE SODIUM PHOSPHATE [Suspect]
     Dosage: INTRAVENOUS
     Route: 042
     Dates: start: 20090801
  6. PROZAC [Concomitant]
  7. CARVEDILOL [Concomitant]
  8. CALCIUM [Concomitant]

REACTIONS (1)
  - DYSPNOEA [None]
